FAERS Safety Report 21920633 (Version 1)
Quarter: 2023Q1

REPORT INFORMATION
  Report Type: Spontaneous
  Country: US (occurrence: US)
  Receive Date: 20230127
  Receipt Date: 20230127
  Transmission Date: 20230418
  Serious: No
  Sender: FDA-Public Use
  Company Number: US-TEVA-2023-US-2845338

PATIENT
  Age: 72 Year

DRUGS (1)
  1. DEXTROAMPHETAMINE SULFATE [Suspect]
     Active Substance: DEXTROAMPHETAMINE SULFATE
     Indication: Product used for unknown indication
     Dosage: ER CAPSULES , 10 MILLIGRAM
     Route: 065

REACTIONS (3)
  - Discomfort [Unknown]
  - Gastrointestinal disorder [Unknown]
  - Fatigue [Unknown]
